FAERS Safety Report 6581201-3 (Version None)
Quarter: 2010Q1

REPORT INFORMATION
  Report Type: 
  Country: None (occurrence: None)
  Receive Date: 20100215
  Receipt Date: 20100205
  Transmission Date: 20100710
  Serious: Yes (Hospitalization)
  Sender: FDA-Public Use
  Company Number: FR-RB-002211-10

PATIENT
  Age: 37 Year
  Sex: Male

DRUGS (3)
  1. SUBUTEX [Suspect]
     Dosage: UNKNOWN DOSING DETAILS
     Route: 014
  2. SUBUTEX [Suspect]
     Dosage: UNKNOWN DOSING DETAILS
     Route: 042
  3. VALIUM [Concomitant]
     Indication: DRUG USE FOR UNKNOWN INDICATION
     Dosage: UNKNOWN DOSING DETAILS
     Route: 065

REACTIONS (6)
  - ARTHRITIS BACTERIAL [None]
  - DRUG ABUSE [None]
  - INCORRECT ROUTE OF DRUG ADMINISTRATION [None]
  - INJECTION SITE ULCER [None]
  - SEPSIS [None]
  - SUBSTANCE ABUSE [None]
